FAERS Safety Report 22229509 (Version 1)
Quarter: 2023Q2

REPORT INFORMATION
  Report Type: Report from Study
  Country: DE (occurrence: DE)
  Receive Date: 20230419
  Receipt Date: 20230419
  Transmission Date: 20230721
  Serious: Yes (Other)
  Sender: FDA-Public Use
  Company Number: DE-MYLANLABS-2023M1041544

PATIENT
  Age: 37 Year
  Sex: Male

DRUGS (12)
  1. AZATHIOPRINE [Suspect]
     Active Substance: AZATHIOPRINE
     Indication: Chorioretinitis
     Dosage: 150 MILLIGRAM, QD
     Route: 048
  2. AZATHIOPRINE [Suspect]
     Active Substance: AZATHIOPRINE
     Indication: Retinal occlusive vasculitis
  3. METHOTREXATE [Suspect]
     Active Substance: METHOTREXATE
     Indication: Chorioretinitis
     Dosage: 5 MILLIGRAM, QW
     Route: 058
  4. METHOTREXATE [Suspect]
     Active Substance: METHOTREXATE
     Indication: Retinal occlusive vasculitis
  5. ADALIMUMAB [Suspect]
     Active Substance: ADALIMUMAB
     Indication: Chorioretinitis
     Dosage: 40 MILLIGRAM, BIWEEKLY
     Route: 058
  6. ADALIMUMAB [Suspect]
     Active Substance: ADALIMUMAB
     Indication: Retinal occlusive vasculitis
  7. BEVACIZUMAB [Suspect]
     Active Substance: BEVACIZUMAB
     Indication: Chorioretinitis
     Dosage: 6 INJECTION
  8. BEVACIZUMAB [Suspect]
     Active Substance: BEVACIZUMAB
     Indication: Retinal occlusive vasculitis
  9. BEVACIZUMAB [Suspect]
     Active Substance: BEVACIZUMAB
     Indication: Cystoid macular oedema
  10. OZURDEX [Suspect]
     Active Substance: DEXAMETHASONE
     Indication: Chorioretinitis
     Dosage: OD
  11. OZURDEX [Suspect]
     Active Substance: DEXAMETHASONE
     Indication: Cystoid macular oedema
  12. OZURDEX [Suspect]
     Active Substance: DEXAMETHASONE
     Indication: Retinal occlusive vasculitis

REACTIONS (4)
  - Hepatic enzyme increased [Unknown]
  - Drug ineffective [Unknown]
  - Drug ineffective for unapproved indication [Unknown]
  - Off label use [Unknown]
